FAERS Safety Report 20364144 (Version 1)
Quarter: 2022Q1

REPORT INFORMATION
  Report Type: Spontaneous
  Country: CA (occurrence: CA)
  Receive Date: 20220121
  Receipt Date: 20220121
  Transmission Date: 20220423
  Serious: Yes (Hospitalization, Other)
  Sender: FDA-Public Use
  Company Number: CA-TEVA-2022-CA-2001577

PATIENT
  Age: 47 Year
  Sex: Female

DRUGS (22)
  1. CYCLOBENZAPRINE [Interacting]
     Active Substance: CYCLOBENZAPRINE
     Indication: Pain
     Dosage: 20 MILLIGRAM DAILY;
     Route: 048
  2. FLUOXETINE HYDROCHLORIDE [Interacting]
     Active Substance: FLUOXETINE HYDROCHLORIDE
     Indication: Major depression
     Dosage: 20 MILLIGRAM DAILY;
     Route: 048
  3. FLUOXETINE HYDROCHLORIDE [Interacting]
     Active Substance: FLUOXETINE HYDROCHLORIDE
     Dosage: 80 MILLIGRAM DAILY;
     Route: 048
  4. FLUOXETINE HYDROCHLORIDE [Interacting]
     Active Substance: FLUOXETINE HYDROCHLORIDE
     Dosage: 60 MILLIGRAM DAILY;
     Route: 048
  5. FLUOXETINE HYDROCHLORIDE [Interacting]
     Active Substance: FLUOXETINE HYDROCHLORIDE
     Dosage: 40 MILLIGRAM DAILY;
     Route: 048
  6. GABAPENTIN [Interacting]
     Active Substance: GABAPENTIN
     Indication: Pain
     Dosage: 1800 MILLIGRAM DAILY;
     Route: 048
  7. LORAZEPAM [Interacting]
     Active Substance: LORAZEPAM
     Indication: Withdrawal syndrome
     Route: 065
  8. QUETIAPINE FUMARATE [Interacting]
     Active Substance: QUETIAPINE FUMARATE
     Indication: Major depression
     Dosage: 100 MILLIGRAM DAILY;
     Route: 048
  9. QUETIAPINE FUMARATE [Interacting]
     Active Substance: QUETIAPINE FUMARATE
     Route: 065
  10. RISPERIDONE [Interacting]
     Active Substance: RISPERIDONE
     Indication: Affective disorder
     Dosage: 1 MILLIGRAM DAILY;
     Route: 048
  11. DOXEPIN HYDROCHLORIDE [Suspect]
     Active Substance: DOXEPIN HYDROCHLORIDE
     Indication: Major depression
     Dosage: 50 MILLIGRAM DAILY;
     Route: 048
  12. DOXEPIN HYDROCHLORIDE [Suspect]
     Active Substance: DOXEPIN HYDROCHLORIDE
     Dosage: 100 MILLIGRAM DAILY;
     Route: 048
  13. DOXEPIN HYDROCHLORIDE [Suspect]
     Active Substance: DOXEPIN HYDROCHLORIDE
     Dosage: 150 MILLIGRAM DAILY;
     Route: 048
  14. METHADONE [Suspect]
     Active Substance: METHADONE HYDROCHLORIDE
     Indication: Drug use disorder
     Dosage: 75 MILLIGRAM DAILY;
     Route: 048
  15. DIVALPROEX SODIUM [Suspect]
     Active Substance: DIVALPROEX SODIUM
     Indication: Major depression
     Route: 048
  16. DIVALPROEX SODIUM [Suspect]
     Active Substance: DIVALPROEX SODIUM
     Route: 048
  17. ATENOLOL [Concomitant]
     Active Substance: ATENOLOL
     Indication: Hypertension
     Route: 048
  18. ESTRADIOL BENZOATE [Concomitant]
     Active Substance: ESTRADIOL BENZOATE
     Indication: Endometriosis
     Dosage: .5 MILLIGRAM DAILY;
     Route: 048
  19. FUROSEMIDE [Concomitant]
     Active Substance: FUROSEMIDE
     Indication: Oedema peripheral
     Route: 048
  20. NAPROXEN [Concomitant]
     Active Substance: NAPROXEN
     Indication: Pain
     Dosage: 1000 MILLIGRAM DAILY;
     Route: 048
  21. ALBUTEROL [Concomitant]
     Active Substance: ALBUTEROL
     Indication: Chronic obstructive pulmonary disease
     Route: 055
  22. TIOTROPIUM BROMIDE [Concomitant]
     Active Substance: TIOTROPIUM BROMIDE
     Indication: Chronic obstructive pulmonary disease
     Dosage: 5 MICROGRAM DAILY;
     Route: 055

REACTIONS (4)
  - Depressed level of consciousness [Unknown]
  - Respiratory depression [Unknown]
  - Toxicity to various agents [Unknown]
  - Drug interaction [Unknown]
